FAERS Safety Report 6028919-9 (Version None)
Quarter: 2008Q4

REPORT INFORMATION
  Report Type: 
  Country: None (occurrence: None)
  Receive Date: 20081222
  Receipt Date: 20081030
  Transmission Date: 20090506
  Serious: No
  Sender: FDA-Public Use
  Company Number: ALL1-2008-03172

PATIENT
  Age: 8 Year
  Sex: Female
  Weight: 24.9 kg

DRUGS (1)
  1. VYVANSE [Suspect]
     Indication: NEUROFIBROMATOSIS
     Dosage: 50 MG, 1X/DAY:QD, ORAL
     Route: 048
     Dates: start: 20070101

REACTIONS (3)
  - DRUG INEFFECTIVE FOR UNAPPROVED INDICATION [None]
  - DYSPHEMIA [None]
  - OFF LABEL USE [None]
